FAERS Safety Report 25243631 (Version 1)
Quarter: 2025Q2

REPORT INFORMATION
  Report Type: Spontaneous
  Country: CN (occurrence: CN)
  Receive Date: 20250428
  Receipt Date: 20250428
  Transmission Date: 20250717
  Serious: Yes (Life-Threatening, Hospitalization)
  Sender: Unknown Manufacturer
  Company Number: CN-ASTRAZENECA-202504CHN015842CN

PATIENT

DRUGS (3)
  1. METOPROLOL SUCCINATE [Suspect]
     Active Substance: METOPROLOL SUCCINATE
     Indication: Ventricular extrasystoles
     Dosage: 47.5 MILLIGRAM, QD
     Route: 048
     Dates: start: 20250330, end: 20250416
  2. METOPROLOL SUCCINATE [Suspect]
     Active Substance: METOPROLOL SUCCINATE
     Dosage: 47.50 MILLIGRAM, QD
     Route: 048
     Dates: start: 20250330, end: 20250408
  3. PROPAFENONE HYDROCHLORIDE [Suspect]
     Active Substance: PROPAFENONE HYDROCHLORIDE
     Indication: Product used for unknown indication
     Dosage: 100.000000 MILLIGRAM,3 TIMES 1 DAY
     Route: 048
     Dates: start: 20250401, end: 20250416

REACTIONS (4)
  - Asthenia [Recovering/Resolving]
  - Chest discomfort [Recovering/Resolving]
  - Heart rate decreased [Recovering/Resolving]
  - Dizziness [Recovering/Resolving]

NARRATIVE: CASE EVENT DATE: 20250407
